FAERS Safety Report 5550814-X (Version None)
Quarter: 2007Q4

REPORT INFORMATION
  Report Type: 
  Country: None (occurrence: None)
  Receive Date: 20071212
  Receipt Date: 20070518
  Transmission Date: 20080405
  Serious: No
  Sender: FDA-Public Use
  Company Number: US-AMGEN-KDL220773

PATIENT
  Sex: Female
  Weight: 64.7 kg

DRUGS (8)
  1. ENBREL [Suspect]
     Indication: RHEUMATOID ARTHRITIS
     Route: 058
     Dates: start: 20070315
  2. METHOTREXATE [Concomitant]
     Dates: start: 20070201
  3. NSAID [Concomitant]
  4. LEFLUNOMIDE [Concomitant]
  5. CALCIUM [Concomitant]
  6. VITAMIN D [Concomitant]
  7. OSCAL [Concomitant]
  8. ACTONEL [Concomitant]
     Dates: start: 20061201

REACTIONS (3)
  - ALANINE AMINOTRANSFERASE INCREASED [None]
  - ASPARTATE AMINOTRANSFERASE INCREASED [None]
  - HEPATOCELLULAR DAMAGE [None]
